FAERS Safety Report 8992184 (Version 1)
Quarter: 2012Q4

REPORT INFORMATION
  Report Type: 
  Country: IT (occurrence: DE)
  Receive Date: 20121231
  Receipt Date: 20121231
  Transmission Date: 20130627
  Serious: Yes (Other)
  Sender: FDA-Public Use
  Company Number: DE-FRI-1000041326

PATIENT
  Sex: Female
  Weight: 92 kg

DRUGS (1)
  1. FOSFOMYCIN [Suspect]
     Route: 048
     Dates: start: 201111, end: 201111

REACTIONS (3)
  - Somnolence [Recovered/Resolved]
  - Diarrhoea [Recovered/Resolved]
  - Fatigue [Recovered/Resolved]
